FAERS Safety Report 6643826-6 (Version None)
Quarter: 2010Q1

REPORT INFORMATION
  Report Type: 
  Country: None (occurrence: None)
  Receive Date: 20100322
  Receipt Date: 20100312
  Transmission Date: 20100710
  Serious: Yes (Other)
  Sender: FDA-Public Use
  Company Number: JP-JNJFOC-20100302284

PATIENT
  Age: 80 Year
  Sex: Male
  Weight: 50 kg

DRUGS (10)
  1. ITRIZOLE [Suspect]
     Indication: OESOPHAGEAL CANDIDIASIS
     Route: 048
  2. RONFLEMAN [Interacting]
     Indication: DRUG USE FOR UNKNOWN INDICATION
     Route: 048
  3. AISLAR [Concomitant]
     Route: 048
  4. PENTASA [Concomitant]
     Route: 065
  5. EPAND [Concomitant]
     Route: 048
  6. PREDNISOLONE [Concomitant]
     Route: 065
  7. FLIVAS [Concomitant]
     Route: 048
  8. LASIX [Concomitant]
     Route: 065
  9. SPIRONOLACTONE [Concomitant]
     Route: 048
  10. BIOFERMIN [Concomitant]
     Route: 048

REACTIONS (7)
  - DIZZINESS [None]
  - DRUG INTERACTION [None]
  - FALL [None]
  - GAIT DISTURBANCE [None]
  - HYPOTENSION [None]
  - INCONTINENCE [None]
  - MUSCULAR WEAKNESS [None]
